FAERS Safety Report 23762567 (Version 3)
Quarter: 2024Q3

REPORT INFORMATION
  Report Type: Spontaneous
  Country: US (occurrence: US)
  Receive Date: 20240419
  Receipt Date: 20240701
  Transmission Date: 20241017
  Serious: No
  Sender: PFIZER
  Company Number: US-PFIZER INC-202400089309

PATIENT
  Age: 54 Year
  Sex: Female

DRUGS (3)
  1. CIBINQO [Suspect]
     Active Substance: ABROCITINIB
     Indication: Dermatitis atopic
     Dosage: 100 MG, 1X/DAY
     Route: 048
  2. CIBINQO [Suspect]
     Active Substance: ABROCITINIB
     Dosage: 200 MG, 1X/DAY
     Route: 048
  3. CYCLOSPORINE [Suspect]
     Active Substance: CYCLOSPORINE
     Dosage: UNK

REACTIONS (3)
  - Condition aggravated [Unknown]
  - Off label use [Unknown]
  - Product use issue [Unknown]
